FAERS Safety Report 5925322-4 (Version None)
Quarter: 2008Q4

REPORT INFORMATION
  Report Type: 
  Country: None (occurrence: None)
  Receive Date: 20081020
  Receipt Date: 20081020
  Transmission Date: 20090506
  Serious: Yes (Other)
  Sender: FDA-Public Use
  Company Number: None

PATIENT
  Age: 67 Year
  Sex: Male
  Weight: 58.0604 kg

DRUGS (2)
  1. FLOMAX [Suspect]
  2. AVODART [Suspect]

REACTIONS (1)
  - EYE DISORDER [None]
